FAERS Safety Report 7362366-2 (Version None)
Quarter: 2011Q1

REPORT INFORMATION
  Report Type: 
  Country: None (occurrence: None)
  Receive Date: 20110318
  Receipt Date: 20110315
  Transmission Date: 20110831
  Serious: Yes (Death)
  Sender: FDA-Public Use
  Company Number: US-CELGENEUS-163-21880-11031864

PATIENT
  Age: 75 Year
  Sex: Male

DRUGS (10)
  1. ARIXTRA [Concomitant]
     Route: 065
  2. NOVOLIN R [Concomitant]
     Route: 065
  3. REVLIMID [Suspect]
     Indication: MULTIPLE MYELOMA
     Dosage: 25-5MG
     Route: 048
     Dates: start: 20080401
  4. FUROSEMIDE [Concomitant]
     Route: 065
  5. REVLIMID [Suspect]
     Dosage: 20 MILLIGRAM
     Route: 048
     Dates: start: 20100101, end: 20100301
  6. AREDIA [Concomitant]
     Route: 065
  7. BIAXIN [Concomitant]
     Route: 065
  8. MORPHINE [Concomitant]
     Route: 065
  9. IPRATROPIUM BROMIDE [Concomitant]
     Route: 065
  10. DECADRON [Concomitant]
     Dosage: ALTERNATING 20MG AND 40MG
     Route: 065
     Dates: start: 20100101

REACTIONS (2)
  - MULTIPLE MYELOMA [None]
  - DEATH [None]
